FAERS Safety Report 15295896 (Version 2)
Quarter: 2018Q3

REPORT INFORMATION
  Report Type: Spontaneous
  Country: US (occurrence: US)
  Receive Date: 20180820
  Receipt Date: 20180921
  Transmission Date: 20181010
  Serious: No
  Sender: FDA-Public Use
  Company Number: US-ASTRAZENECA-2018SF01148

PATIENT
  Age: 74 Year
  Sex: Female

DRUGS (2)
  1. IBRANCE [Suspect]
     Active Substance: PALBOCICLIB
     Indication: BREAST CANCER METASTATIC
     Route: 048
  2. FASLODEX [Suspect]
     Active Substance: FULVESTRANT
     Indication: BREAST CANCER METASTATIC
     Dosage: UNKNOWN
     Route: 030
     Dates: start: 201806

REACTIONS (9)
  - Pruritus [Recovered/Resolved]
  - Feeling abnormal [Unknown]
  - Injection site pain [Recovered/Resolved]
  - Adverse drug reaction [Unknown]
  - Mood altered [Recovered/Resolved]
  - Injection site erythema [Recovered/Resolved]
  - Fatigue [Unknown]
  - Constipation [Recovering/Resolving]
  - White blood cell count abnormal [Unknown]

NARRATIVE: CASE EVENT DATE: 201807
